FAERS Safety Report 5139849-9 (Version None)
Quarter: 2006Q4

REPORT INFORMATION
  Report Type: 
  Country: None (occurrence: None)
  Receive Date: 20061026
  Receipt Date: 20061026
  Transmission Date: 20070319
  Serious: Yes (Hospitalization)
  Sender: FDA-Public Use
  Company Number: None

PATIENT
  Age: 60 Year
  Sex: Male
  Weight: 83 kg

DRUGS (1)
  1. DICLOFENAC POTASSIUM [Suspect]
     Indication: OSTEOARTHRITIS
     Dosage: 75MG  BID  PRN  PO
     Route: 048

REACTIONS (4)
  - ABDOMINAL PAIN [None]
  - ERYTHEMA [None]
  - FAECES DISCOLOURED [None]
  - HAEMATEMESIS [None]
